FAERS Safety Report 21634261 (Version 2)
Quarter: 2023Q2

REPORT INFORMATION
  Report Type: Report from Study
  Country: US (occurrence: US)
  Receive Date: 20221123
  Receipt Date: 20230411
  Transmission Date: 20230721
  Serious: Yes (Death)
  Sender: FDA-Public Use
  Company Number: US-CORCEPT THERAPEUTICS INC.-US-2022CRT001819

PATIENT
  Age: 66 Year
  Sex: Female
  Weight: 100.68 kg

DRUGS (2)
  1. KORLYM [Suspect]
     Active Substance: MIFEPRISTONE
     Indication: Cushing^s syndrome
     Dosage: 300 MG, QD
     Route: 048
     Dates: start: 20211006, end: 20211230
  2. KORLYM [Suspect]
     Active Substance: MIFEPRISTONE
     Dosage: 600 MG, BID
     Route: 048
     Dates: start: 20220128

REACTIONS (1)
  - Death [Fatal]

NARRATIVE: CASE EVENT DATE: 20221102
